FAERS Safety Report 9521351 (Version 2)
Quarter: 2013Q3

REPORT INFORMATION
  Report Type: Spontaneous
  Country: US (occurrence: None)
  Receive Date: 20130911
  Receipt Date: 20130917
  Transmission Date: 20140515
  Serious: Yes (Death, Hospitalization)
  Sender: FDA-Public Use
  Company Number: 2013AP007849

PATIENT
  Age: 57 Year
  Sex: Female

DRUGS (11)
  1. METFORMIN HCL [Suspect]
     Route: 048
  2. MIRTAZAPINE [Concomitant]
  3. ATORVASTATIN [Concomitant]
  4. GLIPIZIDE [Concomitant]
  5. ZIPIO-G [Concomitant]
  6. TRAZODONE [Concomitant]
  7. LOSARTAN [Concomitant]
  8. CLONAZEPAM [Concomitant]
  9. UBIDECARENONE [Concomitant]
  10. ASPIRIN [Concomitant]
  11. VITAMINS /90003601/ [Concomitant]

REACTIONS (9)
  - Toxicity to various agents [None]
  - Completed suicide [None]
  - Depressed level of consciousness [None]
  - Vomiting [None]
  - Diarrhoea [None]
  - Stomatitis [None]
  - Hypotension [None]
  - Haemodialysis [None]
  - Poisoning deliberate [None]
